FAERS Safety Report 4539487-2 (Version None)
Quarter: 2004Q4

REPORT INFORMATION
  Report Type: 
  Country: None (occurrence: None)
  Receive Date: 20041222
  Receipt Date: 20041203
  Transmission Date: 20050328
  Serious: Yes (Death, Life-Threatening, Other)
  Sender: FDA-Public Use
  Company Number: GBS040915668

PATIENT
  Age: 74 Year
  Sex: Female
  Weight: 60 kg

DRUGS (7)
  1. XIGRIS [Suspect]
     Indication: SEPSIS
     Dosage: 120 MG
     Dates: start: 20040922, end: 20040926
  2. RANITIDINE [Concomitant]
  3. CEFUROXIME [Concomitant]
  4. METRONIDAZOLE [Concomitant]
  5. AMOXICILLIN [Concomitant]
  6. PENICILLIN [Concomitant]
  7. HEPARIN [Concomitant]

REACTIONS (2)
  - DISSEMINATED INTRAVASCULAR COAGULATION [None]
  - THROMBOCYTOPENIA [None]
